FAERS Safety Report 7250815-X (Version None)
Quarter: 2011Q1

REPORT INFORMATION
  Report Type: 
  Country: None (occurrence: None)
  Receive Date: 20110128
  Receipt Date: 20110119
  Transmission Date: 20110831
  Serious: Yes (Death, Hospitalization)
  Sender: FDA-Public Use
  Company Number: US-BRISTOL-MYERS SQUIBB COMPANY-15285679

PATIENT
  Age: 71 Year
  Sex: Male
  Weight: 110 kg

DRUGS (12)
  1. ASPIRIN [Concomitant]
     Indication: CARDIOVASCULAR DISORDER
     Dates: start: 19800101
  2. COMPAZINE [Concomitant]
     Indication: NAUSEA
  3. ALIMTA [Suspect]
     Indication: HEAD AND NECK CANCER
     Dosage: ON DAY 1 EVERY 21 DAYS.TAKEN OFF STUDY:05SEP10
     Route: 042
     Dates: start: 20100819
  4. LIDOCAINE HYDROCHLORIDE IN PLASTIC CONTAINER [Concomitant]
     Indication: MUCOSAL INFLAMMATION
     Dates: start: 20100826
  5. FOLIC ACID [Concomitant]
     Dates: start: 20100813
  6. CLINDAMYCIN [Concomitant]
     Indication: DERMATITIS ACNEIFORM
     Route: 061
     Dates: start: 20100826
  7. NYSTATIN [Concomitant]
     Indication: MUCOSAL INFLAMMATION
     Route: 048
     Dates: start: 20100826
  8. CETUXIMAB [Suspect]
     Indication: HEAD AND NECK CANCER
     Dosage: LAST DOSE26AUG.TAKEN OFF:5SEP 250MG/M2 GIVEN WKIV,ON28AUG10 C1D8DOSE,26AUG10-ONG
     Route: 042
     Dates: start: 20100819
  9. CARBOPLATIN [Suspect]
     Indication: HEAD AND NECK CANCER
     Dosage: 1DF=5 AUC 5 ON DAY 1 EVERY 21 DAYS.TAKEN OFF STUDY:05SEP10
     Route: 042
     Dates: start: 20100819
  10. ZOFRAN [Concomitant]
     Indication: NAUSEA
  11. DIPHENHYDRAMINE [Concomitant]
     Indication: MUCOSAL INFLAMMATION
     Dates: start: 20100826
  12. VITAMIN B-12 [Concomitant]
     Dates: start: 20100813

REACTIONS (4)
  - THROMBOCYTOPENIA [None]
  - NEUTROPHIL COUNT DECREASED [None]
  - FEBRILE NEUTROPENIA [None]
  - EPISTAXIS [None]
